FAERS Safety Report 5585517-9 (Version None)
Quarter: 2008Q1

REPORT INFORMATION
  Report Type: 
  Country: None (occurrence: None)
  Receive Date: 20080109
  Receipt Date: 20080104
  Transmission Date: 20080703
  Serious: Yes (Hospitalization)
  Sender: FDA-Public Use
  Company Number: A0701456A

PATIENT
  Age: 68 Year
  Sex: Male

DRUGS (6)
  1. VENTOLIN [Suspect]
     Indication: EMPHYSEMA
     Dosage: 2PUFF AS REQUIRED
     Route: 055
     Dates: start: 20070701
  2. XANAX [Concomitant]
  3. BLOOD PRESSURE MEDICATION [Concomitant]
  4. FUROSEMIDE [Concomitant]
  5. AZITHROMYCIN [Concomitant]
  6. SPIRIVA [Concomitant]

REACTIONS (3)
  - DRUG INEFFECTIVE [None]
  - HEADACHE [None]
  - PRODUCTIVE COUGH [None]
